FAERS Safety Report 22931795 (Version 6)
Quarter: 2025Q2

REPORT INFORMATION
  Report Type: Spontaneous
  Country: CA (occurrence: CA)
  Receive Date: 20230911
  Receipt Date: 20250617
  Transmission Date: 20250717
  Serious: Yes (Hospitalization, Other)
  Sender: BOEHRINGER INGELHEIM
  Company Number: CA-BoehringerIngelheim-2023-BI-259763

PATIENT
  Age: 35 Year
  Sex: Female

DRUGS (20)
  1. SPIRIVA [Suspect]
     Active Substance: TIOTROPIUM BROMIDE MONOHYDRATE
     Indication: Asthma
  2. OMALIZUMAB [Suspect]
     Active Substance: OMALIZUMAB
     Indication: Asthma
  3. OMALIZUMAB [Suspect]
     Active Substance: OMALIZUMAB
  4. OMALIZUMAB [Suspect]
     Active Substance: OMALIZUMAB
  5. VILANTEROL [Suspect]
     Active Substance: VILANTEROL
     Indication: Asthma
  6. VILANTEROL [Suspect]
     Active Substance: VILANTEROL
  7. VILANTEROL [Suspect]
     Active Substance: VILANTEROL
  8. PREDNISONE [Suspect]
     Active Substance: PREDNISONE
     Indication: Asthma
  9. PREDNISONE [Suspect]
     Active Substance: PREDNISONE
  10. PREDNISONE [Suspect]
     Active Substance: PREDNISONE
  11. FLUTICASONE FUROATE [Suspect]
     Active Substance: FLUTICASONE FUROATE
     Indication: Asthma
  12. FLUTICASONE FUROATE [Suspect]
     Active Substance: FLUTICASONE FUROATE
  13. FLUTICASONE FUROATE [Suspect]
     Active Substance: FLUTICASONE FUROATE
  14. MIRTAZAPINE [Suspect]
     Active Substance: MIRTAZAPINE
     Indication: Product used for unknown indication
  15. MIRTAZAPINE [Suspect]
     Active Substance: MIRTAZAPINE
  16. MIRTAZAPINE [Suspect]
     Active Substance: MIRTAZAPINE
  17. DUPILUMAB [Suspect]
     Active Substance: DUPILUMAB
     Indication: Asthma
  18. DUPILUMAB [Suspect]
     Active Substance: DUPILUMAB
  19. DUPILUMAB [Suspect]
     Active Substance: DUPILUMAB
  20. OXYGEN [Suspect]
     Active Substance: OXYGEN
     Indication: Asthma

REACTIONS (7)
  - Diabetes mellitus [Unknown]
  - Gestational hypertension [Unknown]
  - Live birth [Unknown]
  - Premature delivery [Unknown]
  - Steroid diabetes [Unknown]
  - Maternal exposure before pregnancy [Unknown]
  - Product ineffective [Unknown]
